FAERS Safety Report 5923334-8 (Version None)
Quarter: 2008Q4

REPORT INFORMATION
  Report Type: 
  Country: None (occurrence: None)
  Receive Date: 20081020
  Receipt Date: 20081014
  Transmission Date: 20090506
  Serious: Yes (Death)
  Sender: FDA-Public Use
  Company Number: JP-AVENTIS-200812963JP

PATIENT
  Age: 59 Year
  Sex: Female
  Weight: 34 kg

DRUGS (41)
  1. LASIX [Suspect]
     Indication: RENAL FAILURE
     Route: 048
     Dates: start: 20070307, end: 20070507
  2. LASIX [Suspect]
     Route: 048
     Dates: start: 20070511, end: 20070517
  3. DEPAKENE                           /00228501/ [Suspect]
     Dates: start: 20070129, end: 20070507
  4. DEPAKENE                           /00228501/ [Suspect]
     Dosage: DOSE QUANTITY: 900
     Route: 054
     Dates: start: 20070508, end: 20070510
  5. DEPAKENE                           /00228501/ [Suspect]
     Dates: start: 20070511, end: 20070517
  6. MIYA BM [Suspect]
     Dates: start: 20070129, end: 20070507
  7. MIYA BM [Suspect]
     Dates: start: 20070511, end: 20070517
  8. LAC B [Suspect]
     Dates: start: 20070129, end: 20070507
  9. LAC B [Suspect]
     Dates: start: 20070511, end: 20070517
  10. ASPARA K                           /00466902/ [Suspect]
     Dates: start: 20070307, end: 20070507
  11. ASPARA K                           /00466902/ [Suspect]
     Dates: start: 20070511, end: 20070517
  12. RITALIN [Suspect]
     Dates: start: 20070307, end: 20070320
  13. RITALIN [Suspect]
     Dates: start: 20070321, end: 20070507
  14. RITALIN [Suspect]
     Dates: start: 20070511, end: 20070517
  15. ALDACTONE [Suspect]
     Indication: RENAL FAILURE
     Dates: start: 20070307, end: 20070507
  16. ALDACTONE [Suspect]
     Dates: start: 20070511, end: 20070517
  17. BAKTAR [Suspect]
     Indication: PNEUMONIA
     Dosage: DOSE: 3 TABLETS/DAY
     Dates: start: 20070502, end: 20070515
  18. PENTCILLIN [Suspect]
     Route: 042
     Dates: start: 20070508, end: 20070514
  19. ZANTAC [Suspect]
     Route: 042
     Dates: start: 20070508, end: 20070516
  20. ADONA [Suspect]
     Route: 042
     Dates: start: 20070508, end: 20070508
  21. TRANSAMIN [Suspect]
     Route: 042
     Dates: start: 20070508, end: 20070508
  22. MYSTAN [Concomitant]
     Dates: start: 20070307, end: 20070413
  23. DIAZEPAM [Concomitant]
     Route: 042
     Dates: start: 20070430, end: 20070430
  24. HIRTONIN [Concomitant]
     Route: 042
     Dates: start: 20070331, end: 20070409
  25. MODACIN [Concomitant]
     Indication: PNEUMONIA
     Route: 042
     Dates: start: 20070330, end: 20070404
  26. VANCOMYCIN HYDROCHLORIDE [Concomitant]
     Route: 042
     Dates: start: 20070330, end: 20070404
  27. CRAVIT [Concomitant]
     Indication: BLEPHARITIS
     Dates: start: 20070330, end: 20070420
  28. CRAVIT [Concomitant]
     Dates: start: 20070330, end: 20070420
  29. RINDERON                           /00008501/ [Concomitant]
     Dates: start: 20070330, end: 20070420
  30. RINDERON                           /00008501/ [Concomitant]
     Dates: start: 20070330, end: 20070420
  31. UNASYN [Concomitant]
     Indication: PNEUMONIA
     Route: 042
     Dates: start: 20070326, end: 20070329
  32. SODIUM CHLORIDE [Concomitant]
     Indication: TRANSFUSION
     Route: 042
     Dates: start: 20070330, end: 20070408
  33. SODIUM CHLORIDE [Concomitant]
     Route: 042
     Dates: start: 20070512, end: 20070519
  34. VEEN-F [Concomitant]
     Indication: TRANSFUSION
     Route: 042
     Dates: start: 20070508, end: 20070510
  35. VEEN 3G [Concomitant]
     Indication: TRANSFUSION
     Route: 042
     Dates: start: 20070508, end: 20070510
  36. VEEN 3G [Concomitant]
     Route: 042
     Dates: start: 20070519, end: 20070519
  37. SOLDEM 3A [Concomitant]
     Indication: TRANSFUSION
     Route: 042
     Dates: start: 20070508, end: 20070519
  38. BFLUID [Concomitant]
     Indication: TRANSFUSION
     Route: 042
     Dates: start: 20070508, end: 20070510
  39. BFLUID [Concomitant]
     Route: 042
     Dates: start: 20070518, end: 20070518
  40. BFLUID [Concomitant]
     Indication: NUTRITIONAL SUPPORT
     Route: 042
     Dates: start: 20070508, end: 20070510
  41. BFLUID [Concomitant]
     Route: 042
     Dates: start: 20070518, end: 20070518

REACTIONS (2)
  - DISSEMINATED INTRAVASCULAR COAGULATION [None]
  - TOXIC EPIDERMAL NECROLYSIS [None]
